FAERS Safety Report 20420351 (Version 1)
Quarter: 2022Q1

REPORT INFORMATION
  Report Type: Report from Study
  Country: US (occurrence: US)
  Receive Date: 20220203
  Receipt Date: 20220203
  Transmission Date: 20220423
  Serious: Yes (Hospitalization)
  Sender: FDA-Public Use
  Company Number: US-SERVIER-S22000840

PATIENT

DRUGS (7)
  1. PEGASPARGASE [Suspect]
     Active Substance: PEGASPARGASE
     Indication: Acute lymphocytic leukaemia
     Dosage: 3560 IU (2000 IU/M?), ON D15 AND D43
     Route: 042
     Dates: start: 20211109
  2. PEGASPARGASE [Suspect]
     Active Substance: PEGASPARGASE
     Dosage: 3560 IU (2000 IU/M?), ON D15 AND D43
     Route: 042
     Dates: start: 20211206
  3. TN UNSPECIFIED [Concomitant]
     Indication: Acute lymphocytic leukaemia
     Dosage: 1000 MG/M2, ON D1 AND D29
     Route: 042
     Dates: start: 20211025, end: 20211123
  4. TN UNSPECIFIED [Concomitant]
     Indication: Acute lymphocytic leukaemia
     Dosage: 75 MG/M2, ON D1 TO D4, D8 TO D11, D29 TO D32, D36 TO D39
     Route: 042
     Dates: start: 20211025, end: 20211202
  5. TN UNSPECIFIED [Concomitant]
     Indication: Acute lymphocytic leukaemia
     Dosage: 60 MG/M2, ON D1 TO D14, D29 TO D42
     Route: 048
     Dates: start: 20211025, end: 20211205
  6. TN UNSPECIFIED [Concomitant]
     Indication: Acute lymphocytic leukaemia
     Dosage: 15 MG, ON D1, D8, D15 AND D22
     Route: 037
     Dates: start: 20211015, end: 20211117
  7. TN UNSPECIFIED [Concomitant]
     Indication: Acute lymphocytic leukaemia
     Dosage: 1.5 MG/M2, ON D1, D8, D15 AND D22
     Route: 042
     Dates: start: 20211108, end: 20211213

REACTIONS (2)
  - Hyperlipidaemia [Recovered/Resolved]
  - Duodenal ulcer [Recovered/Resolved]

NARRATIVE: CASE EVENT DATE: 20211217
